FAERS Safety Report 8136265 (Version 38)
Quarter: 2022Q2

REPORT INFORMATION
  Report Type: Spontaneous
  Country: GB (occurrence: None)
  Receive Date: 20110914
  Receipt Date: 20220506
  Transmission Date: 20220720
  Serious: Yes (Life-Threatening, Hospitalization, Disabling, Other)
  Sender: FDA-Public Use
  Company Number: 2011SE53176

PATIENT
  Age: 31 Year
  Sex: Female
  Weight: 63.5 kg

DRUGS (122)
  1. QUETIAPINE FUMARATE [Interacting]
     Active Substance: QUETIAPINE FUMARATE
     Indication: Psychotic disorder
     Dosage: 300 MG, UNK
     Route: 048
     Dates: start: 20110224, end: 20110506
  2. QUETIAPINE FUMARATE [Interacting]
     Active Substance: QUETIAPINE FUMARATE
     Indication: Psychotic disorder
     Dosage: UNK
     Route: 048
     Dates: start: 19990801, end: 20110706
  3. OMEPRAZOLE [Interacting]
     Active Substance: OMEPRAZOLE
     Indication: Dyspepsia
     Dosage: 20 MG, QD
     Route: 048
     Dates: start: 20110525
  4. DIAZEPAM [Interacting]
     Active Substance: DIAZEPAM
     Indication: Muscle spasms
     Dosage: 8 MG, QD
     Route: 048
     Dates: start: 20110725
  5. DIAZEPAM [Interacting]
     Active Substance: DIAZEPAM
     Indication: Serotonin syndrome
     Dosage: 8 MG, QD
     Route: 048
     Dates: start: 20110725
  6. DIAZEPAM [Interacting]
     Active Substance: DIAZEPAM
     Indication: Muscle spasms
     Dosage: 5 MG, QID
     Route: 065
     Dates: start: 20110725
  7. DIAZEPAM [Interacting]
     Active Substance: DIAZEPAM
     Indication: Serotonin syndrome
     Dosage: 5 MG, QID
     Route: 065
     Dates: start: 20110725
  8. DIAZEPAM [Interacting]
     Active Substance: DIAZEPAM
     Indication: Muscle spasms
     Dosage: 20 MG, QD 5 MILLIGRAM, QID (5 MG QDS AND NOW ON 2-2-4 MG)
     Route: 065
     Dates: start: 20110725
  9. DIAZEPAM [Interacting]
     Active Substance: DIAZEPAM
     Indication: Serotonin syndrome
     Dosage: 20 MG, QD 5 MILLIGRAM, QID (5 MG QDS AND NOW ON 2-2-4 MG)
     Route: 065
     Dates: start: 20110725
  10. DIAZEPAM [Interacting]
     Active Substance: DIAZEPAM
     Indication: Muscle spasms
     Dosage: DOSAGE FORM: UNSPECIFIED
     Route: 065
  11. DIAZEPAM [Interacting]
     Active Substance: DIAZEPAM
     Indication: Serotonin syndrome
     Dosage: DOSAGE FORM: UNSPECIFIED
     Route: 065
  12. DIAZEPAM [Interacting]
     Active Substance: DIAZEPAM
     Indication: Muscle spasms
     Dosage: 8 MG, QD
     Route: 065
  13. DIAZEPAM [Interacting]
     Active Substance: DIAZEPAM
     Indication: Serotonin syndrome
     Dosage: 8 MG, QD
     Route: 065
  14. CLONAZEPAM [Interacting]
     Active Substance: CLONAZEPAM
     Indication: Sedation
     Dosage: UNSURE
     Route: 048
     Dates: start: 20110224, end: 20110410
  15. CLONAZEPAM [Interacting]
     Active Substance: CLONAZEPAM
     Indication: Sedation
     Dosage: THERAPY END FLAG: DRUG NO LONGER ADMINISTERED
     Route: 048
     Dates: start: 20110410
  16. CODEINE [Interacting]
     Active Substance: CODEINE
     Indication: Analgesic therapy
     Dosage: UNSURE, 24 - EVERY HOUR. UNK UNK, QD
     Route: 048
     Dates: start: 20110615, end: 20110702
  17. CODEINE [Interacting]
     Active Substance: CODEINE
     Indication: Serotonin syndrome
     Dosage: UNSURE, 24 - EVERY HOUR. UNK UNK, QD
     Route: 048
     Dates: start: 20110615, end: 20110702
  18. CODEINE [Interacting]
     Active Substance: CODEINE
     Indication: Analgesic therapy
     Route: 048
     Dates: start: 2008, end: 2008
  19. CODEINE [Interacting]
     Active Substance: CODEINE
     Indication: Serotonin syndrome
     Route: 048
     Dates: start: 2008, end: 2008
  20. CODEINE [Interacting]
     Active Substance: CODEINE
     Indication: Analgesic therapy
     Dosage: 24 - EVERY HOUR
     Route: 048
     Dates: start: 20110615, end: 20110723
  21. CODEINE [Interacting]
     Active Substance: CODEINE
     Indication: Serotonin syndrome
     Dosage: 24 - EVERY HOUR
     Route: 048
     Dates: start: 20110615, end: 20110723
  22. CODEINE [Interacting]
     Active Substance: CODEINE
     Indication: Analgesic therapy
     Route: 048
     Dates: start: 2002, end: 2002
  23. CODEINE [Interacting]
     Active Substance: CODEINE
     Indication: Serotonin syndrome
     Route: 048
     Dates: start: 2002, end: 2002
  24. CODEINE [Interacting]
     Active Substance: CODEINE
     Indication: Analgesic therapy
     Dosage: UNK
     Route: 065
     Dates: start: 20110224, end: 20110410
  25. CODEINE [Interacting]
     Active Substance: CODEINE
     Indication: Serotonin syndrome
     Dosage: UNK
     Route: 065
     Dates: start: 20110224, end: 20110410
  26. AMITRIPTYLINE HYDROCHLORIDE [Interacting]
     Active Substance: AMITRIPTYLINE HYDROCHLORIDE
     Indication: Muscle spasms
     Dosage: 25 MG, QD (AT NIGHT)
     Route: 065
     Dates: start: 20110810
  27. AMITRIPTYLINE HYDROCHLORIDE [Interacting]
     Active Substance: AMITRIPTYLINE HYDROCHLORIDE
     Indication: Neuralgia
     Dosage: 25 MG, QD (AT NIGHT)
     Route: 065
     Dates: start: 20110810
  28. AMITRIPTYLINE HYDROCHLORIDE [Interacting]
     Active Substance: AMITRIPTYLINE HYDROCHLORIDE
     Indication: Serotonin syndrome
     Dosage: 25 MG, QD (AT NIGHT)
     Route: 065
     Dates: start: 20110810
  29. AMITRIPTYLINE HYDROCHLORIDE [Interacting]
     Active Substance: AMITRIPTYLINE HYDROCHLORIDE
     Indication: Muscle spasms
     Route: 065
  30. AMITRIPTYLINE HYDROCHLORIDE [Interacting]
     Active Substance: AMITRIPTYLINE HYDROCHLORIDE
     Indication: Neuralgia
     Route: 065
  31. AMITRIPTYLINE HYDROCHLORIDE [Interacting]
     Active Substance: AMITRIPTYLINE HYDROCHLORIDE
     Indication: Serotonin syndrome
     Route: 065
  32. LORAZEPAM [Interacting]
     Active Substance: LORAZEPAM
     Indication: Sedation
     Dosage: 1 MG, QID, DRUG WITHDRAWN
     Route: 048
     Dates: start: 20110224, end: 20110410
  33. LORAZEPAM [Interacting]
     Active Substance: LORAZEPAM
     Indication: Sedation
     Dosage: 1 MG, QID
     Route: 048
     Dates: start: 20110523, end: 20110627
  34. LORAZEPAM [Interacting]
     Active Substance: LORAZEPAM
     Indication: Sedation
     Dosage: 1 MILLIGRAM
     Route: 048
     Dates: start: 20110725
  35. LORAZEPAM [Interacting]
     Active Substance: LORAZEPAM
     Indication: Sedation
     Route: 048
     Dates: start: 20110523, end: 20110627
  36. MIRTAZAPINE [Interacting]
     Active Substance: MIRTAZAPINE
     Indication: Depression
     Dosage: UNSURE
     Route: 048
     Dates: start: 20100923, end: 20101108
  37. MIRTAZAPINE [Interacting]
     Active Substance: MIRTAZAPINE
     Indication: Depression
     Dosage: UNSURE, DRUG WITHDRAWN
     Route: 048
     Dates: start: 20101007, end: 20101012
  38. MIRTAZAPINE [Interacting]
     Active Substance: MIRTAZAPINE
     Indication: Depression
     Dosage: 30MG IN THE DAY AND 15MG AT NIGHT
     Route: 065
     Dates: start: 20110224, end: 20110506
  39. MIRTAZAPINE [Interacting]
     Active Substance: MIRTAZAPINE
     Indication: Depression
     Route: 065
  40. DOMPERIDONE [Interacting]
     Active Substance: DOMPERIDONE
     Indication: Product used for unknown indication
     Route: 065
  41. DOMPERIDONE [Interacting]
     Active Substance: DOMPERIDONE
     Indication: Product used for unknown indication
     Dosage: UNK
     Route: 065
     Dates: start: 20100923, end: 20101108
  42. DOMPERIDONE [Interacting]
     Active Substance: DOMPERIDONE
     Indication: Product used for unknown indication
     Route: 065
  43. PROCYCLIDINE HYDROCHLORIDE [Interacting]
     Active Substance: PROCYCLIDINE HYDROCHLORIDE
     Indication: Oculogyric crisis
     Route: 048
     Dates: start: 20110324, end: 20110506
  44. PROCYCLIDINE HYDROCHLORIDE [Interacting]
     Active Substance: PROCYCLIDINE HYDROCHLORIDE
     Indication: Extrapyramidal disorder
     Route: 048
     Dates: start: 20110324, end: 20110506
  45. PROCYCLIDINE HYDROCHLORIDE [Interacting]
     Active Substance: PROCYCLIDINE HYDROCHLORIDE
     Indication: Oculogyric crisis
     Dosage: 15 MG, QD (5 MG, TID)
     Route: 048
     Dates: start: 20110503, end: 20110510
  46. PROCYCLIDINE HYDROCHLORIDE [Interacting]
     Active Substance: PROCYCLIDINE HYDROCHLORIDE
     Indication: Extrapyramidal disorder
     Dosage: 15 MG, QD (5 MG, TID)
     Route: 048
     Dates: start: 20110503, end: 20110510
  47. PROCYCLIDINE HYDROCHLORIDE [Interacting]
     Active Substance: PROCYCLIDINE HYDROCHLORIDE
     Indication: Oculogyric crisis
     Route: 065
     Dates: start: 20110415
  48. PROCYCLIDINE HYDROCHLORIDE [Interacting]
     Active Substance: PROCYCLIDINE HYDROCHLORIDE
     Indication: Extrapyramidal disorder
     Route: 065
     Dates: start: 20110415
  49. PROCYCLIDINE HYDROCHLORIDE [Interacting]
     Active Substance: PROCYCLIDINE HYDROCHLORIDE
     Indication: Oculogyric crisis
     Dosage: 5 MG, Q24H
     Route: 048
     Dates: start: 1995, end: 1996
  50. PROCYCLIDINE HYDROCHLORIDE [Interacting]
     Active Substance: PROCYCLIDINE HYDROCHLORIDE
     Indication: Extrapyramidal disorder
     Dosage: 5 MG, Q24H
     Route: 048
     Dates: start: 1995, end: 1996
  51. PROCYCLIDINE HYDROCHLORIDE [Interacting]
     Active Substance: PROCYCLIDINE HYDROCHLORIDE
     Indication: Oculogyric crisis
     Dosage: UNK
     Route: 065
     Dates: start: 1995, end: 1996
  52. PROCYCLIDINE HYDROCHLORIDE [Interacting]
     Active Substance: PROCYCLIDINE HYDROCHLORIDE
     Indication: Extrapyramidal disorder
     Dosage: UNK
     Route: 065
     Dates: start: 1995, end: 1996
  53. PROCYCLIDINE HYDROCHLORIDE [Interacting]
     Active Substance: PROCYCLIDINE HYDROCHLORIDE
     Indication: Oculogyric crisis
     Dosage: DOSAGE FORM: UNSPECIFIED
     Route: 065
     Dates: start: 1995, end: 1996
  54. PROCYCLIDINE HYDROCHLORIDE [Interacting]
     Active Substance: PROCYCLIDINE HYDROCHLORIDE
     Indication: Extrapyramidal disorder
     Dosage: DOSAGE FORM: UNSPECIFIED
     Route: 065
     Dates: start: 1995, end: 1996
  55. PAROXETINE [Interacting]
     Active Substance: PAROXETINE
     Indication: Depression
     Dosage: 60 MG, QD (20 MG 3 TIMES PER DAY)
     Route: 048
     Dates: start: 19990801, end: 201105
  56. PAROXETINE [Interacting]
     Active Substance: PAROXETINE
     Indication: Post-traumatic stress disorder
     Dosage: 60 MG, QD (20 MG 3 TIMES PER DAY)
     Route: 048
     Dates: start: 19990801, end: 201105
  57. PAROXETINE [Interacting]
     Active Substance: PAROXETINE
     Indication: Depression
     Dosage: 60 MG, QD (20 MG THREE TIMES A DAY)
     Route: 048
     Dates: start: 1997, end: 201105
  58. PAROXETINE [Interacting]
     Active Substance: PAROXETINE
     Indication: Post-traumatic stress disorder
     Dosage: 60 MG, QD (20 MG THREE TIMES A DAY)
     Route: 048
     Dates: start: 1997, end: 201105
  59. PAROXETINE [Interacting]
     Active Substance: PAROXETINE
     Indication: Depression
     Dosage: 40 MG, QD
     Route: 048
     Dates: start: 201105, end: 20110706
  60. PAROXETINE [Interacting]
     Active Substance: PAROXETINE
     Indication: Post-traumatic stress disorder
     Dosage: 40 MG, QD
     Route: 048
     Dates: start: 201105, end: 20110706
  61. PAROXETINE [Interacting]
     Active Substance: PAROXETINE
     Indication: Depression
     Dosage: 40 MG, UNK
     Route: 065
     Dates: start: 19990801, end: 20110706
  62. PAROXETINE [Interacting]
     Active Substance: PAROXETINE
     Indication: Post-traumatic stress disorder
     Dosage: 40 MG, UNK
     Route: 065
     Dates: start: 19990801, end: 20110706
  63. PAROXETINE [Interacting]
     Active Substance: PAROXETINE
     Indication: Depression
     Dosage: UNK
     Route: 065
     Dates: start: 1996
  64. PAROXETINE [Interacting]
     Active Substance: PAROXETINE
     Indication: Post-traumatic stress disorder
     Dosage: UNK
     Route: 065
     Dates: start: 1996
  65. PAROXETINE [Interacting]
     Active Substance: PAROXETINE
     Indication: Depression
     Dosage: 20 MG, BID
     Route: 065
     Dates: start: 2011, end: 20110706
  66. PAROXETINE [Interacting]
     Active Substance: PAROXETINE
     Indication: Post-traumatic stress disorder
     Dosage: 20 MG, BID
     Route: 065
     Dates: start: 2011, end: 20110706
  67. TRAMADOL HYDROCHLORIDE [Interacting]
     Active Substance: TRAMADOL HYDROCHLORIDE
     Indication: Analgesic therapy
     Route: 048
     Dates: start: 1995, end: 1995
  68. TRAMADOL HYDROCHLORIDE [Interacting]
     Active Substance: TRAMADOL HYDROCHLORIDE
     Indication: Oculogyric crisis
     Route: 048
     Dates: start: 1995, end: 1995
  69. TRAMADOL HYDROCHLORIDE [Interacting]
     Active Substance: TRAMADOL HYDROCHLORIDE
     Indication: Back pain
     Route: 048
     Dates: start: 1995, end: 1995
  70. TRAMADOL HYDROCHLORIDE [Interacting]
     Active Substance: TRAMADOL HYDROCHLORIDE
     Indication: Neck pain
     Route: 048
     Dates: start: 1995, end: 1995
  71. TRAMADOL HYDROCHLORIDE [Interacting]
     Active Substance: TRAMADOL HYDROCHLORIDE
     Indication: Serotonin syndrome
     Route: 048
     Dates: start: 1995, end: 1995
  72. TRAMADOL HYDROCHLORIDE [Interacting]
     Active Substance: TRAMADOL HYDROCHLORIDE
     Indication: Muscle spasms
     Route: 048
     Dates: start: 1995, end: 1995
  73. TRAMADOL HYDROCHLORIDE [Interacting]
     Active Substance: TRAMADOL HYDROCHLORIDE
     Indication: Analgesic therapy
     Dosage: 4 CYCLICAL, QD (50-100 MG QD), 2008/2009, DRUG START/DRUG WITHDRAWN
     Route: 048
     Dates: start: 20081201, end: 20101210
  74. TRAMADOL HYDROCHLORIDE [Interacting]
     Active Substance: TRAMADOL HYDROCHLORIDE
     Indication: Oculogyric crisis
     Dosage: 4 CYCLICAL, QD (50-100 MG QD), 2008/2009, DRUG START/DRUG WITHDRAWN
     Route: 048
     Dates: start: 20081201, end: 20101210
  75. TRAMADOL HYDROCHLORIDE [Interacting]
     Active Substance: TRAMADOL HYDROCHLORIDE
     Indication: Back pain
     Dosage: 4 CYCLICAL, QD (50-100 MG QD), 2008/2009, DRUG START/DRUG WITHDRAWN
     Route: 048
     Dates: start: 20081201, end: 20101210
  76. TRAMADOL HYDROCHLORIDE [Interacting]
     Active Substance: TRAMADOL HYDROCHLORIDE
     Indication: Neck pain
     Dosage: 4 CYCLICAL, QD (50-100 MG QD), 2008/2009, DRUG START/DRUG WITHDRAWN
     Route: 048
     Dates: start: 20081201, end: 20101210
  77. TRAMADOL HYDROCHLORIDE [Interacting]
     Active Substance: TRAMADOL HYDROCHLORIDE
     Indication: Serotonin syndrome
     Dosage: 4 CYCLICAL, QD (50-100 MG QD), 2008/2009, DRUG START/DRUG WITHDRAWN
     Route: 048
     Dates: start: 20081201, end: 20101210
  78. TRAMADOL HYDROCHLORIDE [Interacting]
     Active Substance: TRAMADOL HYDROCHLORIDE
     Indication: Muscle spasms
     Dosage: 4 CYCLICAL, QD (50-100 MG QD), 2008/2009, DRUG START/DRUG WITHDRAWN
     Route: 048
     Dates: start: 20081201, end: 20101210
  79. TRAMADOL HYDROCHLORIDE [Interacting]
     Active Substance: TRAMADOL HYDROCHLORIDE
     Indication: Analgesic therapy
     Dosage: 4 CYCLICAL, QD
     Route: 048
     Dates: start: 20080722
  80. TRAMADOL HYDROCHLORIDE [Interacting]
     Active Substance: TRAMADOL HYDROCHLORIDE
     Indication: Oculogyric crisis
     Dosage: 4 CYCLICAL, QD
     Route: 048
     Dates: start: 20080722
  81. TRAMADOL HYDROCHLORIDE [Interacting]
     Active Substance: TRAMADOL HYDROCHLORIDE
     Indication: Back pain
     Dosage: 4 CYCLICAL, QD
     Route: 048
     Dates: start: 20080722
  82. TRAMADOL HYDROCHLORIDE [Interacting]
     Active Substance: TRAMADOL HYDROCHLORIDE
     Indication: Neck pain
     Dosage: 4 CYCLICAL, QD
     Route: 048
     Dates: start: 20080722
  83. TRAMADOL HYDROCHLORIDE [Interacting]
     Active Substance: TRAMADOL HYDROCHLORIDE
     Indication: Serotonin syndrome
     Dosage: 4 CYCLICAL, QD
     Route: 048
     Dates: start: 20080722
  84. TRAMADOL HYDROCHLORIDE [Interacting]
     Active Substance: TRAMADOL HYDROCHLORIDE
     Indication: Muscle spasms
     Dosage: 4 CYCLICAL, QD
     Route: 048
     Dates: start: 20080722
  85. TRAMADOL HYDROCHLORIDE [Interacting]
     Active Substance: TRAMADOL HYDROCHLORIDE
     Indication: Analgesic therapy
     Dosage: 5 MG QDS AND NOW ON 2-2-4 MG
     Route: 065
     Dates: start: 20110725
  86. TRAMADOL HYDROCHLORIDE [Interacting]
     Active Substance: TRAMADOL HYDROCHLORIDE
     Indication: Oculogyric crisis
     Dosage: 5 MG QDS AND NOW ON 2-2-4 MG
     Route: 065
     Dates: start: 20110725
  87. TRAMADOL HYDROCHLORIDE [Interacting]
     Active Substance: TRAMADOL HYDROCHLORIDE
     Indication: Back pain
     Dosage: 5 MG QDS AND NOW ON 2-2-4 MG
     Route: 065
     Dates: start: 20110725
  88. TRAMADOL HYDROCHLORIDE [Interacting]
     Active Substance: TRAMADOL HYDROCHLORIDE
     Indication: Neck pain
     Dosage: 5 MG QDS AND NOW ON 2-2-4 MG
     Route: 065
     Dates: start: 20110725
  89. TRAMADOL HYDROCHLORIDE [Interacting]
     Active Substance: TRAMADOL HYDROCHLORIDE
     Indication: Serotonin syndrome
     Dosage: 5 MG QDS AND NOW ON 2-2-4 MG
     Route: 065
     Dates: start: 20110725
  90. TRAMADOL HYDROCHLORIDE [Interacting]
     Active Substance: TRAMADOL HYDROCHLORIDE
     Indication: Muscle spasms
     Dosage: 5 MG QDS AND NOW ON 2-2-4 MG
     Route: 065
     Dates: start: 20110725
  91. TRAMADOL HYDROCHLORIDE [Interacting]
     Active Substance: TRAMADOL HYDROCHLORIDE
     Indication: Analgesic therapy
     Dosage: 8 MG, QD
     Route: 065
     Dates: start: 20110725
  92. TRAMADOL HYDROCHLORIDE [Interacting]
     Active Substance: TRAMADOL HYDROCHLORIDE
     Indication: Oculogyric crisis
     Dosage: 8 MG, QD
     Route: 065
     Dates: start: 20110725
  93. TRAMADOL HYDROCHLORIDE [Interacting]
     Active Substance: TRAMADOL HYDROCHLORIDE
     Indication: Back pain
     Dosage: 8 MG, QD
     Route: 065
     Dates: start: 20110725
  94. TRAMADOL HYDROCHLORIDE [Interacting]
     Active Substance: TRAMADOL HYDROCHLORIDE
     Indication: Neck pain
     Dosage: 8 MG, QD
     Route: 065
     Dates: start: 20110725
  95. TRAMADOL HYDROCHLORIDE [Interacting]
     Active Substance: TRAMADOL HYDROCHLORIDE
     Indication: Serotonin syndrome
     Dosage: 8 MG, QD
     Route: 065
     Dates: start: 20110725
  96. TRAMADOL HYDROCHLORIDE [Interacting]
     Active Substance: TRAMADOL HYDROCHLORIDE
     Indication: Muscle spasms
     Dosage: 8 MG, QD
     Route: 065
     Dates: start: 20110725
  97. TRAMADOL HYDROCHLORIDE [Interacting]
     Active Substance: TRAMADOL HYDROCHLORIDE
     Indication: Analgesic therapy
     Dosage: 5 MG, 4 TIMES A DAY
     Route: 065
     Dates: start: 20110725
  98. TRAMADOL HYDROCHLORIDE [Interacting]
     Active Substance: TRAMADOL HYDROCHLORIDE
     Indication: Oculogyric crisis
     Dosage: 5 MG, 4 TIMES A DAY
     Route: 065
     Dates: start: 20110725
  99. TRAMADOL HYDROCHLORIDE [Interacting]
     Active Substance: TRAMADOL HYDROCHLORIDE
     Indication: Back pain
     Dosage: 5 MG, 4 TIMES A DAY
     Route: 065
     Dates: start: 20110725
  100. TRAMADOL HYDROCHLORIDE [Interacting]
     Active Substance: TRAMADOL HYDROCHLORIDE
     Indication: Neck pain
     Dosage: 5 MG, 4 TIMES A DAY
     Route: 065
     Dates: start: 20110725
  101. TRAMADOL HYDROCHLORIDE [Interacting]
     Active Substance: TRAMADOL HYDROCHLORIDE
     Indication: Serotonin syndrome
     Dosage: 5 MG, 4 TIMES A DAY
     Route: 065
     Dates: start: 20110725
  102. TRAMADOL HYDROCHLORIDE [Interacting]
     Active Substance: TRAMADOL HYDROCHLORIDE
     Indication: Muscle spasms
     Dosage: 5 MG, 4 TIMES A DAY
     Route: 065
     Dates: start: 20110725
  103. TRAMADOL HYDROCHLORIDE [Interacting]
     Active Substance: TRAMADOL HYDROCHLORIDE
     Indication: Analgesic therapy
     Dosage: 2008/2009, DRUG START/DRUG WITHDRAWN
     Route: 065
  104. TRAMADOL HYDROCHLORIDE [Interacting]
     Active Substance: TRAMADOL HYDROCHLORIDE
     Indication: Oculogyric crisis
     Dosage: 2008/2009, DRUG START/DRUG WITHDRAWN
     Route: 065
  105. TRAMADOL HYDROCHLORIDE [Interacting]
     Active Substance: TRAMADOL HYDROCHLORIDE
     Indication: Back pain
     Dosage: 2008/2009, DRUG START/DRUG WITHDRAWN
     Route: 065
  106. TRAMADOL HYDROCHLORIDE [Interacting]
     Active Substance: TRAMADOL HYDROCHLORIDE
     Indication: Neck pain
     Dosage: 2008/2009, DRUG START/DRUG WITHDRAWN
     Route: 065
  107. TRAMADOL HYDROCHLORIDE [Interacting]
     Active Substance: TRAMADOL HYDROCHLORIDE
     Indication: Serotonin syndrome
     Dosage: 2008/2009, DRUG START/DRUG WITHDRAWN
     Route: 065
  108. TRAMADOL HYDROCHLORIDE [Interacting]
     Active Substance: TRAMADOL HYDROCHLORIDE
     Indication: Muscle spasms
     Dosage: 2008/2009, DRUG START/DRUG WITHDRAWN
     Route: 065
  109. PAROXETINE HYDROCHLORIDE [Interacting]
     Active Substance: PAROXETINE HYDROCHLORIDE
     Indication: Product used for unknown indication
     Dosage: 60 MG, DAILY (20 MG 3 TIMES PER DAY)]
     Route: 048
     Dates: start: 19990801, end: 201105
  110. PAROXETINE HYDROCHLORIDE [Interacting]
     Active Substance: PAROXETINE HYDROCHLORIDE
     Indication: Depression
     Dosage: 60 MG, DAILY (20 MG 3 TIMES PER DAY)]
     Route: 048
     Dates: start: 19990801, end: 201105
  111. PAROXETINE HYDROCHLORIDE [Interacting]
     Active Substance: PAROXETINE HYDROCHLORIDE
     Indication: Product used for unknown indication
     Dosage: 20 MG (2 PER DAY)
     Route: 048
     Dates: start: 201105, end: 20110706
  112. PAROXETINE HYDROCHLORIDE [Interacting]
     Active Substance: PAROXETINE HYDROCHLORIDE
     Indication: Depression
     Dosage: 20 MG (2 PER DAY)
     Route: 048
     Dates: start: 201105, end: 20110706
  113. PAROXETINE HYDROCHLORIDE [Interacting]
     Active Substance: PAROXETINE HYDROCHLORIDE
     Indication: Product used for unknown indication
     Dosage: 20 MG INTERRUPTED
     Route: 048
     Dates: start: 1997
  114. PAROXETINE HYDROCHLORIDE [Interacting]
     Active Substance: PAROXETINE HYDROCHLORIDE
     Indication: Depression
     Dosage: 20 MG INTERRUPTED
     Route: 048
     Dates: start: 1997
  115. PAROXETINE HYDROCHLORIDE [Interacting]
     Active Substance: PAROXETINE HYDROCHLORIDE
     Indication: Product used for unknown indication
     Route: 048
     Dates: start: 201012
  116. PAROXETINE HYDROCHLORIDE [Interacting]
     Active Substance: PAROXETINE HYDROCHLORIDE
     Indication: Depression
     Route: 048
     Dates: start: 201012
  117. PAROXETINE HYDROCHLORIDE [Interacting]
     Active Substance: PAROXETINE HYDROCHLORIDE
     Indication: Product used for unknown indication
     Dosage: DRUG WITHDRAWN, CUMULATIVE DOSE: 184502.5 MG
     Route: 065
     Dates: start: 1999, end: 201105
  118. PAROXETINE HYDROCHLORIDE [Interacting]
     Active Substance: PAROXETINE HYDROCHLORIDE
     Indication: Depression
     Dosage: DRUG WITHDRAWN, CUMULATIVE DOSE: 184502.5 MG
     Route: 065
     Dates: start: 1999, end: 201105
  119. PHOSPHORUS [Interacting]
     Active Substance: PHOSPHORUS
     Indication: Product used for unknown indication
     Route: 065
  120. PHOSPHORUS [Interacting]
     Active Substance: PHOSPHORUS
     Indication: Product used for unknown indication
     Dosage: INTERRUPTED
     Route: 065
     Dates: start: 1997
  121. PHOSPHORUS [Interacting]
     Active Substance: PHOSPHORUS
     Indication: Product used for unknown indication
     Route: 065
     Dates: start: 1999
  122. TRAMADOL [Interacting]
     Active Substance: TRAMADOL
     Indication: Back pain
     Dosage: 4 MG, QD (4 CYCLICAL PER DAY)
     Route: 048
     Dates: start: 20080722

REACTIONS (94)
  - Dyspnoea [Unknown]
  - Toxicity to various agents [Unknown]
  - Aphasia [Not Recovered/Not Resolved]
  - Pruritus [Unknown]
  - Decreased appetite [Unknown]
  - Pyrexia [Unknown]
  - Suicidal ideation [Not Recovered/Not Resolved]
  - Paraesthesia [Unknown]
  - Disturbance in attention [Unknown]
  - Muscle disorder [Unknown]
  - Feeling of despair [Unknown]
  - Confusional state [Not Recovered/Not Resolved]
  - Limb injury [Unknown]
  - Vomiting [Unknown]
  - Parosmia [Unknown]
  - Tinnitus [Unknown]
  - Sensory loss [Unknown]
  - Hyperhidrosis [Unknown]
  - Restless legs syndrome [Not Recovered/Not Resolved]
  - Headache [Unknown]
  - Incontinence [Not Recovered/Not Resolved]
  - Swelling face [Unknown]
  - Mydriasis [Unknown]
  - Hypoaesthesia oral [Unknown]
  - Hyperhidrosis [Unknown]
  - Fatigue [Unknown]
  - Arthralgia [Unknown]
  - Paralysis [Unknown]
  - Swollen tongue [Unknown]
  - Exposure during pregnancy [Unknown]
  - Drug interaction [Unknown]
  - Paralysis [Unknown]
  - Diarrhoea [Unknown]
  - Arthralgia [Unknown]
  - Illness [Unknown]
  - Drooling [Unknown]
  - Neuroleptic malignant syndrome [Unknown]
  - Disorientation [Not Recovered/Not Resolved]
  - Tachycardia [Unknown]
  - Agitation [Unknown]
  - Menstrual disorder [Unknown]
  - Depression [Unknown]
  - Mood swings [Unknown]
  - Mania [Unknown]
  - Contusion [Unknown]
  - Tremor [Not Recovered/Not Resolved]
  - Psychotic disorder [Recovered/Resolved]
  - Urinary retention [Unknown]
  - Pallor [Unknown]
  - Vision blurred [Unknown]
  - Hypoaesthesia [Not Recovered/Not Resolved]
  - Cogwheel rigidity [Unknown]
  - Anxiety [Unknown]
  - Emotional disorder [Unknown]
  - Contusion [Not Recovered/Not Resolved]
  - Dissociation [Not Recovered/Not Resolved]
  - Hallucinations, mixed [Unknown]
  - Visual impairment [Unknown]
  - Delirium [Unknown]
  - Skin discolouration [Not Recovered/Not Resolved]
  - Serotonin syndrome [Not Recovered/Not Resolved]
  - Feeling jittery [Unknown]
  - Nightmare [Unknown]
  - Gastric pH decreased [Unknown]
  - Dyskinesia [Unknown]
  - Dystonia [Unknown]
  - H1N1 influenza [Unknown]
  - Dizziness [Unknown]
  - Balance disorder [Unknown]
  - Heart rate increased [Unknown]
  - Blood sodium decreased [Unknown]
  - Asthenia [Unknown]
  - Gait disturbance [Unknown]
  - Schizophrenia [Unknown]
  - Restlessness [Not Recovered/Not Resolved]
  - Hypoaesthesia oral [Not Recovered/Not Resolved]
  - Drug withdrawal syndrome [Unknown]
  - Derealisation [Not Recovered/Not Resolved]
  - Cyanosis [Unknown]
  - Feeling of body temperature change [Unknown]
  - Somnolence [Not Recovered/Not Resolved]
  - Eye pain [Unknown]
  - Muscle rigidity [Unknown]
  - Musculoskeletal stiffness [Not Recovered/Not Resolved]
  - Muscle spasms [Not Recovered/Not Resolved]
  - Seizure [Not Recovered/Not Resolved]
  - Sleep disorder [Unknown]
  - Premature labour [Not Recovered/Not Resolved]
  - Fatigue [Unknown]
  - Speech disorder [Unknown]
  - Off label use [Unknown]
  - Exposure during pregnancy [Unknown]
  - Maternal exposure during pregnancy [Unknown]
  - Therapeutic product ineffective [Unknown]

NARRATIVE: CASE EVENT DATE: 20001201
